FAERS Safety Report 23400483 (Version 1)
Quarter: 2024Q1

REPORT INFORMATION
  Report Type: Report from Study
  Country: US (occurrence: US)
  Receive Date: 20240115
  Receipt Date: 20240115
  Transmission Date: 20240410
  Serious: Yes (Death, Other)
  Sender: FDA-Public Use
  Company Number: US-ACADIA PHARMACEUTICALS INC.-ACA-2024-PIM-000018

PATIENT
  Sex: Male

DRUGS (14)
  1. NUPLAZID [Suspect]
     Active Substance: PIMAVANSERIN TARTRATE
     Indication: Parkinson^s disease
     Dosage: 34 MILLIGRAM, QD
     Route: 048
     Dates: start: 202210
  2. ATORVASTATIN [Concomitant]
     Active Substance: ATORVASTATIN
  3. SEROQUEL [Concomitant]
     Active Substance: QUETIAPINE FUMARATE
  4. MODAFINIL [Concomitant]
     Active Substance: MODAFINIL
  5. MEMANTINE [Concomitant]
     Active Substance: MEMANTINE
  6. BUPROPION [Concomitant]
     Active Substance: BUPROPION
  7. VITAMIN D NOS [Concomitant]
     Active Substance: VITAMIN D NOS
  8. CARBIDOPA [Concomitant]
     Active Substance: CARBIDOPA
  9. MELATONIN [Concomitant]
     Active Substance: MELATONIN
  10. ASPIRIN [Concomitant]
     Active Substance: ASPIRIN
  11. METOPROLOL [Concomitant]
     Active Substance: METOPROLOL
  12. FLUOXETINE [Concomitant]
     Active Substance: FLUOXETINE HYDROCHLORIDE
  13. MELOXICAM [Concomitant]
     Active Substance: MELOXICAM
  14. VITAMIN B12 [Concomitant]
     Active Substance: CYANOCOBALAMIN

REACTIONS (1)
  - Death [Fatal]
